FAERS Safety Report 24605097 (Version 1)
Quarter: 2024Q4

REPORT INFORMATION
  Report Type: Spontaneous
  Country: US (occurrence: US)
  Receive Date: 20241111
  Receipt Date: 20241111
  Transmission Date: 20250115
  Serious: No
  Sender: PARATEK PHARMACEUTICALS
  Company Number: US-PARATEK PHARMACEUTICALS, INC.-2024PTK00585

PATIENT
  Sex: Female

DRUGS (1)
  1. NUZYRA [Suspect]
     Active Substance: OMADACYCLINE
     Indication: Pneumonia
     Dosage: UNK
     Route: 048
     Dates: start: 20240707

REACTIONS (2)
  - Drug ineffective [Not Recovered/Not Resolved]
  - Labelled drug-food interaction medication error [Recovered/Resolved]

NARRATIVE: CASE EVENT DATE: 20240701
